FAERS Safety Report 6610623-7 (Version None)
Quarter: 2010Q1

REPORT INFORMATION
  Report Type: 
  Country: None (occurrence: None)
  Receive Date: 20100302
  Receipt Date: 20100219
  Transmission Date: 20100710
  Serious: Yes (Other)
  Sender: FDA-Public Use
  Company Number: DE-B.I. PHARMACEUTICALS,INC./RIDGEFIELD-2010-DE-01180GD

PATIENT

DRUGS (3)
  1. NEVIRAPINE [Suspect]
     Indication: HIV INFECTION
     Dosage: 400 MG
  2. TENOFOVIR [Suspect]
     Indication: HIV INFECTION
     Dosage: 300 MG
  3. EMTRICITABINE [Suspect]
     Indication: HIV INFECTION
     Dosage: 200 MG

REACTIONS (1)
  - BLOOD CREATINE PHOSPHOKINASE INCREASED [None]
